FAERS Safety Report 5940722-4 (Version None)
Quarter: 2008Q4

REPORT INFORMATION
  Report Type: 
  Country: None (occurrence: None)
  Receive Date: 20081103
  Receipt Date: 20081103
  Transmission Date: 20090506
  Serious: Yes (Hospitalization)
  Sender: FDA-Public Use
  Company Number: None

PATIENT
  Age: 74 Year
  Sex: Male

DRUGS (2)
  1. METHOCARBAMOL [Suspect]
     Indication: MUSCLE SPASMS
     Dosage: 1000 MG PRN PO
     Route: 048
     Dates: start: 20080902, end: 20080922
  2. GABAPENTIN [Suspect]
     Indication: BACK PAIN
     Dosage: 300 MG BID PO
     Route: 048
     Dates: start: 20080918, end: 20080922

REACTIONS (7)
  - BLOOD CREATININE INCREASED [None]
  - CONFUSIONAL STATE [None]
  - DISORIENTATION [None]
  - FALL [None]
  - HALLUCINATION [None]
  - HYPOXIA [None]
  - MENTAL STATUS CHANGES [None]
